FAERS Safety Report 25045054 (Version 2)
Quarter: 2025Q1

REPORT INFORMATION
  Report Type: Spontaneous
  Country: US (occurrence: US)
  Receive Date: 20250306
  Receipt Date: 20250320
  Transmission Date: 20250408
  Serious: Yes (Hospitalization, Other)
  Sender: TEVA
  Company Number: US-TEVA-VS-3305074

PATIENT
  Sex: Male

DRUGS (14)
  1. PREDNISONE [Suspect]
     Active Substance: PREDNISONE
     Indication: Behcet^s syndrome
     Dosage: DOSE: 10 TO 20MG
     Route: 065
  2. AZATHIOPRINE [Suspect]
     Active Substance: AZATHIOPRINE
     Indication: Behcet^s syndrome
     Route: 065
  3. TOCILIZUMAB [Concomitant]
     Active Substance: TOCILIZUMAB
     Indication: Behcet^s syndrome
     Route: 058
  4. COLCHICINE [Concomitant]
     Active Substance: COLCHICINE
     Indication: Behcet^s syndrome
     Route: 048
  5. METHOTREXATE [Suspect]
     Active Substance: METHOTREXATE
     Indication: Behcet^s syndrome
     Route: 065
  6. METRONIDAZOLE [Suspect]
     Active Substance: METRONIDAZOLE
     Indication: Behcet^s syndrome
     Route: 042
  7. PILOCARPINE [Concomitant]
     Active Substance: PILOCARPINE
     Indication: Anisocoria
     Route: 065
  8. VANCOMYCIN [Suspect]
     Active Substance: VANCOMYCIN
     Indication: Behcet^s syndrome
     Route: 042
  9. VANCOMYCIN [Suspect]
     Active Substance: VANCOMYCIN
     Indication: Behcet^s syndrome
     Route: 065
  10. PIPERACILLIN SODIUM\TAZOBACTAM SODIUM [Suspect]
     Active Substance: PIPERACILLIN SODIUM\TAZOBACTAM SODIUM
     Indication: Behcet^s syndrome
     Route: 042
  11. MYCOPHENOLATE MOFETIL [Suspect]
     Active Substance: MYCOPHENOLATE MOFETIL
     Indication: Behcet^s syndrome
     Route: 065
  12. CEFTRIAXONE [Suspect]
     Active Substance: CEFTRIAXONE
     Indication: Behcet^s syndrome
     Route: 065
  13. ADALIMUMAB [Suspect]
     Active Substance: ADALIMUMAB
     Indication: Behcet^s syndrome
     Route: 065
  14. SULFAMETHOXAZOLE\TRIMETHOPRIM [Suspect]
     Active Substance: SULFAMETHOXAZOLE\TRIMETHOPRIM
     Indication: Behcet^s syndrome
     Route: 048

REACTIONS (6)
  - Osteoporosis [Unknown]
  - Hyperlipidaemia [Unknown]
  - Subperiosteal abscess [Recovered/Resolved]
  - Drug ineffective [Unknown]
  - Type 2 diabetes mellitus [Unknown]
  - Glaucoma [Unknown]
